FAERS Safety Report 23978031 (Version 2)
Quarter: 2024Q3

REPORT INFORMATION
  Report Type: Other
  Country: US (occurrence: US)
  Receive Date: 20240614
  Receipt Date: 20240710
  Transmission Date: 20241017
  Serious: Yes (Hospitalization)
  Sender: GLENMARK
  Company Number: US-GLENMARK PHARMACEUTICALS-2024GMK091400

PATIENT

DRUGS (1)
  1. TERIFLUNOMIDE [Suspect]
     Active Substance: TERIFLUNOMIDE
     Indication: Product used for unknown indication
     Dosage: UNK
     Route: 065

REACTIONS (6)
  - Feeling abnormal [Unknown]
  - Mood swings [Unknown]
  - Adverse drug reaction [Unknown]
  - Feeling hot [Unknown]
  - Fatigue [Unknown]
  - Suspected product quality issue [Unknown]
